FAERS Safety Report 9469659 (Version 1)
Quarter: 2013Q3

REPORT INFORMATION
  Report Type: Spontaneous
  Country: US (occurrence: None)
  Receive Date: 20130820
  Receipt Date: 20130820
  Transmission Date: 20140515
  Serious: Yes (Death)
  Sender: FDA-Public Use
  Company Number: None

PATIENT
  Sex: Male

DRUGS (1)
  1. HUMIRA PFS [Suspect]
     Indication: RHEUMATOID ARTHRITIS
     Dosage: 1 PFS, EVERY OTHER WEEK, SQ
     Dates: start: 20131114, end: 20130718

REACTIONS (1)
  - Death [None]
